FAERS Safety Report 7072053-6 (Version None)
Quarter: 2010Q4

REPORT INFORMATION
  Report Type: 
  Country: None (occurrence: None)
  Receive Date: 20101029
  Receipt Date: 20101021
  Transmission Date: 20110411
  Serious: Yes (Hospitalization, Other)
  Sender: FDA-Public Use
  Company Number: US-SANOFI-AVENTIS-2010SA064577

PATIENT
  Age: 87 Year
  Sex: Female

DRUGS (3)
  1. LANTUS [Suspect]
     Indication: TYPE 2 DIABETES MELLITUS
     Dosage: DOSE:13 UNIT(S)
     Route: 058
  2. SOLOSTAR [Suspect]
     Indication: TYPE 2 DIABETES MELLITUS
  3. ALL OTHER THERAPEUTIC PRODUCTS [Concomitant]

REACTIONS (6)
  - CONDITION AGGRAVATED [None]
  - DEAFNESS [None]
  - FALL [None]
  - LOWER LIMB FRACTURE [None]
  - MACULAR DEGENERATION [None]
  - URINARY TRACT INFECTION [None]
